FAERS Safety Report 7138090-8 (Version None)
Quarter: 2010Q4

REPORT INFORMATION
  Report Type: 
  Country: None (occurrence: None)
  Receive Date: 20101206
  Receipt Date: 20101124
  Transmission Date: 20110411
  Serious: Yes (Death)
  Sender: FDA-Public Use
  Company Number: US-ACTELION-A-US2010-41066

PATIENT

DRUGS (5)
  1. TRACLEER [Suspect]
     Indication: PULMONARY ARTERIAL HYPERTENSION
     Dosage: 62.5 MG, UNK
     Route: 048
     Dates: end: 20100101
  2. TRACLEER [Suspect]
     Dosage: 125 MG, UNK
     Route: 048
  3. TRACLEER [Suspect]
     Dosage: 62.5 MG, UNK
     Route: 048
  4. DILTIAZEM [Concomitant]
  5. REVATIO [Concomitant]

REACTIONS (3)
  - DIZZINESS [None]
  - MALAISE [None]
  - PULMONARY FIBROSIS [None]
